FAERS Safety Report 14459450 (Version 1)
Quarter: 2018Q1

REPORT INFORMATION
  Report Type: Spontaneous
  Country: US (occurrence: US)
  Receive Date: 20180129
  Receipt Date: 20180129
  Transmission Date: 20180509
  Serious: Yes (Life-Threatening)
  Sender: FDA-Public Use
  Company Number: None

PATIENT
  Age: 75 Year
  Sex: Male
  Weight: 56.8 kg

DRUGS (1)
  1. GAMUNEX [Suspect]
     Active Substance: HUMAN IMMUNOGLOBULIN G
     Indication: CHRONIC INFLAMMATORY DEMYELINATING POLYRADICULONEUROPATHY
     Dosage: 1GM/10ML INFUSE23GMDAILY3DAYS INTRAVENOUSLY
     Route: 042
     Dates: start: 20170425, end: 20170616

REACTIONS (2)
  - Cardiac failure [None]
  - Emphysema [None]

NARRATIVE: CASE EVENT DATE: 20171129
